FAERS Safety Report 9266814 (Version 1)
Quarter: 2013Q2

REPORT INFORMATION
  Report Type: Other
  Country: GB (occurrence: GB)
  Receive Date: 20130502
  Receipt Date: 20130502
  Transmission Date: 20140414
  Serious: Yes (Hospitalization)
  Sender: FDA-Public Use
  Company Number: GB-PERRIGO-13GB004443

PATIENT
  Age: 72 Year
  Sex: Male

DRUGS (3)
  1. NAPROXEN 250MG 16028/0144 [Suspect]
     Indication: SCIATICA
     Dosage: 250 MG, TID
     Route: 048
     Dates: start: 20130411, end: 20130413
  2. MULTIVITAMIN [Concomitant]
     Indication: PRODUCT USED FOR UNKNOWN INDICATION
     Dosage: UNK
     Route: 065
  3. PARACETAMOL [Concomitant]
     Indication: PRODUCT USED FOR UNKNOWN INDICATION
     Dosage: UNK
     Route: 065

REACTIONS (1)
  - Duodenal ulcer haemorrhage [Recovering/Resolving]
